FAERS Safety Report 11394748 (Version 1)
Quarter: 2015Q3

REPORT INFORMATION
  Report Type: Spontaneous
  Country: US (occurrence: None)
  Receive Date: 20150817
  Receipt Date: 20150817
  Transmission Date: 20151125
  Serious: Yes (Hospitalization)
  Sender: FDA-Public Use
  Company Number: PR 14242

PATIENT
  Age: 66 Year
  Sex: Male
  Weight: 75 kg

DRUGS (2)
  1. XALATAN (LATENOPROST) [Concomitant]
  2. COSOPT [Suspect]
     Active Substance: DORZOLAMIDE HYDROCHLORIDE\TIMOLOL MALEATE
     Indication: GLAUCOMA
     Dates: start: 2000, end: 20150718

REACTIONS (8)
  - Arteriosclerosis [None]
  - Hypothyroidism [None]
  - Coronary artery occlusion [None]
  - Type 2 diabetes mellitus [None]
  - Prostate cancer [None]
  - Cholelithiasis [None]
  - Tracheobronchitis [None]
  - Arrhythmia [None]

NARRATIVE: CASE EVENT DATE: 2005
